FAERS Safety Report 23500239 (Version 1)
Quarter: 2024Q1

REPORT INFORMATION
  Report Type: Spontaneous
  Country: US (occurrence: US)
  Receive Date: 20240208
  Receipt Date: 20240208
  Transmission Date: 20240410
  Serious: No
  Sender: FDA-Public Use
  Company Number: US-002147023-NVSC2024US027593

PATIENT
  Sex: Female

DRUGS (1)
  1. LEQVIO [Suspect]
     Active Substance: INCLISIRAN SODIUM
     Indication: Lipids increased
     Dosage: 284 MG 1 DOSE ON DAY 0, SECOND DOSE ON DAY 90
     Route: 058
     Dates: start: 20230807

REACTIONS (1)
  - Urinary tract infection [Recovered/Resolved]
